FAERS Safety Report 6709703-7 (Version None)
Quarter: 2010Q2

REPORT INFORMATION
  Report Type: 
  Country: None (occurrence: None)
  Receive Date: 20100504
  Receipt Date: 20100422
  Transmission Date: 20101027
  Serious: Yes (Other)
  Sender: FDA-Public Use
  Company Number: US-PFIZER INC-2010017107

PATIENT
  Sex: Male
  Weight: 108.84 kg

DRUGS (1)
  1. SUTENT [Suspect]
     Indication: RENAL CELL CARCINOMA
     Dosage: 50 MG, 1X/DAY, X 4 WEEKS
     Route: 048
     Dates: start: 20091103

REACTIONS (2)
  - INTRAOCULAR PRESSURE INCREASED [None]
  - VISUAL ACUITY REDUCED [None]
